FAERS Safety Report 11991962 (Version 1)
Quarter: 2016Q1

REPORT INFORMATION
  Report Type: Spontaneous
  Country: US (occurrence: US)
  Receive Date: 20160203
  Receipt Date: 20160203
  Transmission Date: 20160526
  Serious: No
  Sender: FDA-Public Use
  Company Number: US-JNJFOC-20151223383

PATIENT
  Age: 80 Year
  Sex: Female
  Weight: 82.1 kg

DRUGS (4)
  1. ZYRTEC [Suspect]
     Active Substance: CETIRIZINE HYDROCHLORIDE
     Indication: EYE IRRITATION
     Dosage: AS NEEDED
     Dates: end: 20151222
  2. ZYRTEC [Suspect]
     Active Substance: CETIRIZINE HYDROCHLORIDE
     Indication: MULTIPLE ALLERGIES
     Dosage: AS NEEDED
     Dates: end: 20151222
  3. ZYRTEC [Suspect]
     Active Substance: CETIRIZINE HYDROCHLORIDE
     Indication: LACRIMATION INCREASED
     Dosage: AS NEEDED
     Dates: end: 20151222
  4. ZYRTEC [Suspect]
     Active Substance: CETIRIZINE HYDROCHLORIDE
     Indication: EYE PRURITUS
     Dosage: AS NEEDED
     Dates: end: 20151222

REACTIONS (3)
  - Product use issue [Unknown]
  - Therapeutic response unexpected [Unknown]
  - Off label use [Unknown]
